FAERS Safety Report 9407586 (Version 3)
Quarter: 2013Q3

REPORT INFORMATION
  Report Type: Report from Study
  Country: US (occurrence: US)
  Receive Date: 20130718
  Receipt Date: 20130821
  Transmission Date: 20140515
  Serious: Yes (Hospitalization)
  Sender: FDA-Public Use
  Company Number: US-ROCHE-1250094

PATIENT
  Age: 45 Year
  Sex: Male

DRUGS (4)
  1. LUCENTIS [Suspect]
     Indication: DIABETIC RETINOPATHY
     Dosage: OS
     Route: 050
     Dates: start: 20121221
  2. LANTUS [Concomitant]
     Indication: PRODUCT USED FOR UNKNOWN INDICATION
  3. GLIPIZIDE [Concomitant]
     Indication: PRODUCT USED FOR UNKNOWN INDICATION
  4. BEPREVE [Concomitant]
     Dosage: AS REQUIRED
     Route: 065

REACTIONS (4)
  - Blood glucose decreased [Recovered/Resolved]
  - Visual acuity reduced [Unknown]
  - Eye pruritus [Unknown]
  - Ocular hyperaemia [Unknown]
